FAERS Safety Report 13825763 (Version 1)
Quarter: 2017Q3

REPORT INFORMATION
  Report Type: Report from Study
  Country: US (occurrence: US)
  Receive Date: 20170802
  Receipt Date: 20170802
  Transmission Date: 20171127
  Serious: Yes (Hospitalization)
  Sender: FDA-Public Use
  Company Number: US-ACTELION-A-US2017-157347

PATIENT
  Age: 66 Year
  Sex: Female

DRUGS (22)
  1. MUPIROCIN. [Concomitant]
     Active Substance: MUPIROCIN
  2. TRAMADOL. [Concomitant]
     Active Substance: TRAMADOL
  3. MORPHINE SULFATE. [Concomitant]
     Active Substance: MORPHINE SULFATE
  4. KEFLEX [Concomitant]
     Active Substance: CEPHALEXIN
  5. MELOXICAM. [Concomitant]
     Active Substance: MELOXICAM
  6. IBANDRONATE [Concomitant]
     Active Substance: IBANDRONATE SODIUM
  7. OXYCODONE [Concomitant]
     Active Substance: OXYCODONE
  8. METHOCARBAMOL. [Concomitant]
     Active Substance: METHOCARBAMOL
  9. LEVOFLOXACIN. [Concomitant]
     Active Substance: LEVOFLOXACIN
  10. KLOR-CON [Concomitant]
     Active Substance: POTASSIUM CHLORIDE
  11. SPIRONOLACTONE. [Concomitant]
     Active Substance: SPIRONOLACTONE
  12. ACETAMINOFEN [Concomitant]
     Active Substance: ACETAMINOPHEN
  13. CIPROFLOXACIN. [Concomitant]
     Active Substance: CIPROFLOXACIN
     Dosage: 500 MG, UNK
  14. FUROSEMIDE. [Concomitant]
     Active Substance: FUROSEMIDE
  15. GABAPENTIN. [Concomitant]
     Active Substance: GABAPENTIN
  16. OMEPRAZOLE. [Concomitant]
     Active Substance: OMEPRAZOLE
  17. TRACLEER [Suspect]
     Active Substance: BOSENTAN
     Indication: PULMONARY ARTERIAL HYPERTENSION
     Dosage: 125 MG, UNK
     Route: 048
     Dates: start: 20170330
  18. METHADONE [Concomitant]
     Active Substance: METHADONE HYDROCHLORIDE
  19. IBUPROFEN. [Concomitant]
     Active Substance: IBUPROFEN
  20. DOXYCYCLINE. [Concomitant]
     Active Substance: DOXYCYCLINE
  21. ESCITALOPRAM [Concomitant]
     Active Substance: ESCITALOPRAM OXALATE
  22. POLYETHYLENE GLYCOL [Concomitant]
     Active Substance: POLYETHYLENE GLYCOLS

REACTIONS (2)
  - Procedural complication [Recovered/Resolved]
  - Hip arthroplasty [Recovered/Resolved]
